FAERS Safety Report 4340097-0 (Version None)
Quarter: 2004Q2

REPORT INFORMATION
  Report Type: 
  Country: None (occurrence: None)
  Receive Date: 20040412
  Receipt Date: 20040329
  Transmission Date: 20050107
  Serious: Yes (Death)
  Sender: FDA-Public Use
  Company Number: 2004AP01410

PATIENT
  Age: 63 Year
  Sex: Male

DRUGS (12)
  1. IRESSA [Suspect]
     Indication: LUNG ADENOCARCINOMA
     Dosage: 250 MG DAILY PO
     Route: 048
     Dates: start: 20040224, end: 20040302
  2. IRESSA [Suspect]
     Indication: NON-SMALL CELL LUNG CANCER
     Dosage: 250 MG DAILY PO
     Route: 048
     Dates: start: 20040224, end: 20040302
  3. CRAVIT [Suspect]
     Dosage: 300 MG DAILY PO
     Route: 048
     Dates: start: 20040301, end: 20040302
  4. MAGNESIUM OXIDE [Concomitant]
  5. OMEPRAZOLE [Concomitant]
  6. PRIMAXIN [Concomitant]
  7. VOLTAREN - SLOW RELEASE ^CIBA-GEIGY^ [Concomitant]
  8. MS CONTIN [Concomitant]
  9. RADIATION THERAPY [Concomitant]
  10. CARBOPLATIN [Concomitant]
  11. PACLITAXEL [Concomitant]
  12. DOCETAXEL [Concomitant]

REACTIONS (11)
  - BLOOD LACTATE DEHYDROGENASE INCREASED [None]
  - BLOOD PH INCREASED [None]
  - C-REACTIVE PROTEIN INCREASED [None]
  - CHEST PAIN [None]
  - DISSEMINATED INTRAVASCULAR COAGULATION [None]
  - DRUG INEFFECTIVE [None]
  - DYSPNOEA EXACERBATED [None]
  - LUNG DISORDER [None]
  - PLATELET COUNT DECREASED [None]
  - PO2 DECREASED [None]
  - SPUTUM DISCOLOURED [None]
